FAERS Safety Report 23454235 (Version 1)
Quarter: 2024Q1

REPORT INFORMATION
  Report Type: Spontaneous
  Country: US (occurrence: US)
  Receive Date: 20240130
  Receipt Date: 20240130
  Transmission Date: 20240410
  Serious: Yes (Other)
  Sender: FDA-Public Use
  Company Number: US-HALEON-USCH2024002548

PATIENT

DRUGS (1)
  1. POLIDENT PRO PARTIAL FLUORIDE MOUTHWASH [Suspect]
     Active Substance: SODIUM FLUORIDE
     Indication: Dental cleaning
     Dosage: UNK

REACTIONS (1)
  - Accidental device ingestion [Unknown]
